FAERS Safety Report 17531857 (Version 3)
Quarter: 2022Q2

REPORT INFORMATION
  Report Type: Report from Study
  Country: CO (occurrence: CO)
  Receive Date: 20200311
  Receipt Date: 20220604
  Transmission Date: 20220720
  Serious: Yes (Hospitalization, Other)
  Sender: FDA-Public Use
  Company Number: CO-NOVARTISPH-NVSC2020CO055340

PATIENT
  Age: 67 Year
  Sex: Female
  Weight: 70 kg

DRUGS (5)
  1. RUXOLITINIB [Suspect]
     Active Substance: RUXOLITINIB
     Indication: Polycythaemia vera
     Dosage: 15 MG, BID (ONE TABLET IN MORNING AND ONE TABLET IN EVENING)
     Route: 048
     Dates: start: 201911
  2. RUXOLITINIB [Suspect]
     Active Substance: RUXOLITINIB
     Dosage: 25 MG, Q12H
     Route: 048
  3. AMLODIPINE [Suspect]
     Active Substance: AMLODIPINE BESYLATE
     Indication: Hypertension
     Dosage: UNK
     Route: 065
  4. LOSARTAN [Suspect]
     Active Substance: LOSARTAN
     Indication: Hypertension
     Dosage: 50 MG, Q12H
     Route: 065
  5. OMEPRAZOLE [Concomitant]
     Active Substance: OMEPRAZOLE
     Indication: Gastritis
     Dosage: UNK
     Route: 065

REACTIONS (13)
  - Platelet count abnormal [Unknown]
  - Infarction [Unknown]
  - Platelet count decreased [Unknown]
  - Tongue haemorrhage [Unknown]
  - Tongue disorder [Recovered/Resolved]
  - Haematemesis [Unknown]
  - Glossodynia [Recovered/Resolved]
  - Illness [Recovering/Resolving]
  - Viral infection [Recovering/Resolving]
  - Pyrexia [Unknown]
  - Vomiting [Unknown]
  - Inappropriate schedule of product administration [Unknown]
  - Headache [Unknown]

NARRATIVE: CASE EVENT DATE: 20190301
